FAERS Safety Report 5157541-1 (Version None)
Quarter: 2006Q4

REPORT INFORMATION
  Report Type: 
  Country: None (occurrence: None)
  Receive Date: 20061127
  Receipt Date: 20061113
  Transmission Date: 20070319
  Serious: Yes (Other)
  Sender: FDA-Public Use
  Company Number: AU-GLAXOSMITHKLINE-B0447588A

PATIENT
  Sex: Female

DRUGS (3)
  1. LAMICTAL [Suspect]
     Dates: start: 20060217
  2. ZYPREXA [Concomitant]
  3. FOLATE [Concomitant]

REACTIONS (1)
  - ABORTION SPONTANEOUS [None]
